FAERS Safety Report 6453256-8 (Version None)
Quarter: 2009Q4

REPORT INFORMATION
  Report Type: 
  Country: None (occurrence: None)
  Receive Date: 20091124
  Receipt Date: 20091116
  Transmission Date: 20100525
  Serious: No
  Sender: FDA-Public Use
  Company Number: US-BAYER-200939799NA

PATIENT
  Age: 32 Year
  Sex: Female

DRUGS (1)
  1. MIRENA [Suspect]
     Indication: DRUG USE FOR UNKNOWN INDICATION
     Dosage: CONTINUOUS
     Route: 015
     Dates: start: 20070731

REACTIONS (4)
  - MEDICAL DEVICE COMPLICATION [None]
  - MENSTRUATION IRREGULAR [None]
  - METRORRHAGIA [None]
  - MOOD SWINGS [None]
